FAERS Safety Report 6390442-X (Version None)
Quarter: 2009Q4

REPORT INFORMATION
  Report Type: 
  Country: None (occurrence: None)
  Receive Date: 20091006
  Receipt Date: 20090929
  Transmission Date: 20100525
  Serious: Yes (Other)
  Sender: FDA-Public Use
  Company Number: US-AVENTIS-200917979US

PATIENT
  Sex: Female

DRUGS (6)
  1. LANTUS [Suspect]
     Route: 058
     Dates: start: 20070101
  2. OPTICLIK (INSULIN INJECTION PEN) [Suspect]
     Dates: start: 20070101
  3. MICRONASE [Concomitant]
     Route: 048
  4. ZOCOR [Concomitant]
     Route: 048
  5. VERAPIMIL [Concomitant]
     Indication: BLOOD PRESSURE ABNORMAL
  6. TRIAMTERENE AND HYDROCHLOROTHIAZIDE [Concomitant]
     Indication: BLOOD PRESSURE ABNORMAL
     Dosage: DOSE: 50/75
     Route: 048

REACTIONS (1)
  - EYE HAEMORRHAGE [None]
